FAERS Safety Report 21232620 (Version 1)
Quarter: 2022Q3

REPORT INFORMATION
  Report Type: Spontaneous
  Country: US (occurrence: None)
  Receive Date: 20220818
  Receipt Date: 20220818
  Transmission Date: 20221027
  Serious: Yes (Hospitalization, Disabling)
  Sender: FDA-Public Use
  Company Number: None

PATIENT
  Age: 43 Year
  Sex: Female
  Weight: 59.42 kg

DRUGS (1)
  1. ENVARSUS XR [Suspect]
     Active Substance: TACROLIMUS
     Indication: Renal transplant
     Dosage: 6MG DAILY ORAL?
     Route: 048
     Dates: start: 202112

REACTIONS (2)
  - Fall [None]
  - Ligament sprain [None]

NARRATIVE: CASE EVENT DATE: 20220801
